FAERS Safety Report 16015075 (Version 1)
Quarter: 2019Q1

REPORT INFORMATION
  Report Type: Report from Study
  Country: US (occurrence: US)
  Receive Date: 20190227
  Receipt Date: 20190227
  Transmission Date: 20190418
  Serious: Yes (Life-Threatening, Hospitalization, Other)
  Sender: FDA-Public Use
  Company Number: US-ROCHE-1355987

PATIENT
  Age: 43 Year
  Sex: Male
  Weight: 68.49 kg

DRUGS (8)
  1. MYCOPHENOLATE MOFETIL. [Suspect]
     Active Substance: MYCOPHENOLATE MOFETIL
     Route: 065
  2. PREDNISONE. [Concomitant]
     Active Substance: PREDNISONE
     Route: 048
  3. RITUXIMAB. [Suspect]
     Active Substance: RITUXIMAB
     Indication: ORGAN TRANSPLANT
     Dosage: GIVEN ONCE ON DAY 15 PRE TRANSPLANT, INFUSED OVER 6 H
     Route: 042
     Dates: start: 20140121, end: 20140121
  4. CELLCEPT [Concomitant]
     Active Substance: MYCOPHENOLATE MOFETIL\MYCOPHENOLATE MOFETIL HYDROCHLORIDE
     Route: 048
  5. RITUXIMAB. [Suspect]
     Active Substance: RITUXIMAB
     Dosage: GIVEN ONCE ON DAY 15 PRE TRANSPLANT, INFUSED OVER 6 H
     Route: 042
     Dates: start: 20140512, end: 20140512
  6. TACROLIMUS. [Concomitant]
     Active Substance: TACROLIMUS
     Dosage: 7 MG AM AND 6 MG PM
     Route: 048
  7. CELLCEPT [Concomitant]
     Active Substance: MYCOPHENOLATE MOFETIL\MYCOPHENOLATE MOFETIL HYDROCHLORIDE
     Indication: PRODUCT USED FOR UNKNOWN INDICATION
     Route: 048
  8. MYCOPHENOLATE MOFETIL. [Suspect]
     Active Substance: MYCOPHENOLATE MOFETIL
     Indication: PRODUCT USED FOR UNKNOWN INDICATION
     Route: 065

REACTIONS (20)
  - Hyponatraemia [Recovered/Resolved]
  - Pyrexia [Unknown]
  - Urinary tract obstruction [Recovered/Resolved]
  - Diarrhoea [Unknown]
  - Pain [Unknown]
  - Fatigue [Unknown]
  - Dyspnoea [Unknown]
  - Constipation [Recovered/Resolved]
  - Transplant rejection [Unknown]
  - Flushing [Unknown]
  - Cough [Unknown]
  - Headache [Unknown]
  - Abdominal pain [Recovered/Resolved]
  - Dysuria [Unknown]
  - Micturition urgency [Unknown]
  - Transplant rejection [Recovered/Resolved]
  - Lip swelling [Unknown]
  - Asthenia [Unknown]
  - Urinary incontinence [Recovered/Resolved]
  - Bladder spasm [Unknown]

NARRATIVE: CASE EVENT DATE: 20140218
